FAERS Safety Report 19392935 (Version 4)
Quarter: 2025Q2

REPORT INFORMATION
  Report Type: Spontaneous
  Country: ES (occurrence: ES)
  Receive Date: 20210609
  Receipt Date: 20250620
  Transmission Date: 20250717
  Serious: Yes (Hospitalization, Other)
  Sender: AUROBINDO
  Company Number: ES-ELI_LILLY_AND_COMPANY-ES202105011987

PATIENT
  Age: 66 Year
  Sex: Female

DRUGS (4)
  1. FLUOXETINE [Suspect]
     Active Substance: FLUOXETINE HYDROCHLORIDE
     Indication: Anxiety
     Route: 065
  2. FLUOXETINE [Suspect]
     Active Substance: FLUOXETINE HYDROCHLORIDE
     Indication: Personality disorder
  3. OLANZAPINE [Suspect]
     Active Substance: OLANZAPINE
     Indication: Personality disorder
     Route: 065
  4. OLANZAPINE [Suspect]
     Active Substance: OLANZAPINE
     Indication: Anxiety

REACTIONS (7)
  - Gastric ulcer [Unknown]
  - Hiatus hernia [Unknown]
  - Gastric ulcer haemorrhage [Unknown]
  - Anaemia [Unknown]
  - Haematemesis [Unknown]
  - Melaena [Unknown]
  - Off label use [Unknown]
